FAERS Safety Report 9223597 (Version 2)
Quarter: 2013Q2

REPORT INFORMATION
  Report Type: Spontaneous
  Country: JP (occurrence: JP)
  Receive Date: 20130410
  Receipt Date: 20130607
  Transmission Date: 20140414
  Serious: No
  Sender: FDA-Public Use
  Company Number: JP-GLAXOSMITHKLINE-B0842912A

PATIENT
  Age: 69 Year
  Sex: Male

DRUGS (11)
  1. PAXIL [Suspect]
     Indication: DEPRESSION
     Route: 048
     Dates: start: 20050323
  2. PAXIL [Suspect]
     Indication: DEPRESSION
     Dosage: 30MG PER DAY
     Route: 048
  3. PAXIL [Suspect]
     Indication: DEPRESSION
     Dosage: 10MG PER DAY
     Route: 048
     Dates: start: 200805, end: 201106
  4. PAXIL [Suspect]
     Indication: DEPRESSION
     Dosage: 10MG PER DAY
     Route: 048
     Dates: start: 201109, end: 20121011
  5. PAXIL [Suspect]
     Indication: DEPRESSION
     Route: 048
     Dates: start: 20121012, end: 20121016
  6. PAXIL [Suspect]
     Indication: DEPRESSION
     Route: 048
     Dates: start: 20121017, end: 20121101
  7. PAXIL [Suspect]
     Indication: DEPRESSION
     Route: 048
     Dates: start: 20121102, end: 20121107
  8. RESLIN [Concomitant]
     Indication: INSOMNIA
     Dosage: 25MG PER DAY
     Route: 048
     Dates: start: 20050323
  9. DEPAS [Concomitant]
     Indication: DEPRESSION
     Dosage: 1.5MG THREE TIMES PER DAY
     Route: 048
     Dates: start: 20050323
  10. DOGMATYL [Concomitant]
     Indication: DEPRESSION
     Dosage: 150MG THREE TIMES PER DAY
     Route: 048
     Dates: start: 20050323
  11. MYSLEE [Concomitant]
     Indication: INSOMNIA
     Dosage: 5MG PER DAY
     Route: 048
     Dates: start: 20110926

REACTIONS (2)
  - Activation syndrome [Recovered/Resolved]
  - Irritability [Unknown]
